FAERS Safety Report 24840997 (Version 1)
Quarter: 2025Q1

REPORT INFORMATION
  Report Type: Spontaneous
  Country: CN (occurrence: CN)
  Receive Date: 20250114
  Receipt Date: 20250114
  Transmission Date: 20250409
  Serious: Yes (Hospitalization, Other)
  Sender: PFIZER
  Company Number: CN-PFIZER INC-PV202500004000

PATIENT
  Age: 47 Year
  Sex: Male
  Weight: 50 kg

DRUGS (1)
  1. ZYVOX [Suspect]
     Active Substance: LINEZOLID
     Indication: Anti-infective therapy
     Dosage: 600 MG, 2X/DAY(Q12H)
     Route: 041
     Dates: start: 20241228, end: 20250101

REACTIONS (3)
  - Drug eruption [Recovering/Resolving]
  - Rash erythematous [Recovering/Resolving]
  - Dysphoria [Unknown]

NARRATIVE: CASE EVENT DATE: 20250101
